FAERS Safety Report 5491385-6 (Version None)
Quarter: 2007Q4

REPORT INFORMATION
  Report Type: 
  Country: None (occurrence: None)
  Receive Date: 20071018
  Receipt Date: 20071002
  Transmission Date: 20080405
  Serious: Yes (Other)
  Sender: FDA-Public Use
  Company Number: DSA_30705_2007

PATIENT

DRUGS (2)
  1. ENALAPRIL MALEATE [Suspect]
     Indication: PROTEINURIA
     Dosage: (10 MG QD ORAL)
     Route: 048
  2. ENALAPRIL MALEATE [Suspect]
     Indication: RENAL TUBULAR DISORDER
     Dosage: (10 MG QD ORAL)
     Route: 048

REACTIONS (1)
  - NEPHROTIC SYNDROME [None]
